FAERS Safety Report 4351585-5 (Version None)
Quarter: 2004Q2

REPORT INFORMATION
  Report Type: 
  Country: None (occurrence: None)
  Receive Date: 20040429
  Receipt Date: 20040318
  Transmission Date: 20050107
  Serious: No
  Sender: FDA-Public Use
  Company Number: 2004-114541-NL

PATIENT
  Age: 33 Year
  Sex: Female

DRUGS (7)
  1. NUVARING [Suspect]
     Indication: CONTRACEPTION
     Dosage: DF DAILY VAGINAL
     Route: 067
     Dates: start: 20030201, end: 20040217
  2. NUVARING [Suspect]
     Indication: MENORRHAGIA
     Dosage: DF DAILY VAGINAL
     Route: 067
     Dates: start: 20030201, end: 20040217
  3. NUVARING [Suspect]
     Indication: CONTRACEPTION
     Dosage: DF DAILY VAGINAL
     Route: 067
     Dates: start: 20030224, end: 20040315
  4. NUVARING [Suspect]
     Indication: MENORRHAGIA
     Dosage: DF DAILY VAGINAL
     Route: 067
     Dates: start: 20030224, end: 20040315
  5. NUVARING [Suspect]
     Indication: CONTRACEPTION
     Dosage: DF DAILY VAGINAL
     Route: 067
     Dates: start: 20040315
  6. NUVARING [Suspect]
     Indication: MENORRHAGIA
     Dosage: DF DAILY VAGINAL
     Route: 067
     Dates: start: 20040315
  7. IRON SUPPLEMENTS [Concomitant]

REACTIONS (1)
  - METRORRHAGIA [None]
